FAERS Safety Report 20900281 (Version 1)
Quarter: 2022Q2

REPORT INFORMATION
  Report Type: Spontaneous
  Country: US (occurrence: US)
  Receive Date: 20220601
  Receipt Date: 20220601
  Transmission Date: 20220720
  Serious: Yes (Other)
  Sender: FDA-Public Use
  Company Number: US-JNJFOC-20220551356

PATIENT
  Age: 6 Year
  Sex: Male
  Weight: 41.54 kg

DRUGS (1)
  1. RISPERDAL [Suspect]
     Active Substance: RISPERIDONE
     Indication: Attention deficit hyperactivity disorder
     Route: 048
     Dates: start: 2010

REACTIONS (6)
  - Weight increased [Unknown]
  - Gynaecomastia [Unknown]
  - Galactorrhoea [Recovered/Resolved]
  - Increased appetite [Unknown]
  - Off label use [Unknown]
  - Product use in unapproved indication [Unknown]

NARRATIVE: CASE EVENT DATE: 20100101
